FAERS Safety Report 4524397-7 (Version None)
Quarter: 2004Q4

REPORT INFORMATION
  Report Type: 
  Country: None (occurrence: None)
  Receive Date: 20041123
  Receipt Date: 20040401
  Transmission Date: 20050328
  Serious: Yes (Life-Threatening, Hospitalization, Other)
  Sender: FDA-Public Use
  Company Number: NSADSS2002019152

PATIENT
  Age: 41 Year
  Sex: Female
  Weight: 54.4316 kg

DRUGS (15)
  1. PROPULSID [Suspect]
     Indication: DIABETIC GASTROPARESIS
     Dosage: SEE IMAGE
     Route: 048
     Dates: start: 19940806, end: 19971111
  2. PROPULSID [Suspect]
     Indication: DIABETIC GASTROPARESIS
     Dosage: SEE IMAGE
     Route: 048
     Dates: start: 19940106
  3. PROPULSID [Suspect]
     Indication: DIABETIC GASTROPARESIS
     Dosage: SEE IMAGE
     Route: 048
     Dates: start: 19980119
  4. PROPULSID [Suspect]
     Indication: DIABETIC GASTROPARESIS
     Dosage: SEE IMAGE
     Route: 048
     Dates: start: 19981101
  5. SYNTHROID [Concomitant]
  6. CREON [Concomitant]
  7. CARAFATE [Concomitant]
  8. LANOXIN [Concomitant]
  9. PREVACID [Concomitant]
  10. PROVERA [Concomitant]
  11. INSULIN [Concomitant]
  12. RITALIN [Concomitant]
  13. WELLBUTRIN [Concomitant]
  14. CAPOTEN [Concomitant]
  15. ZANTAC [Concomitant]

REACTIONS (10)
  - ABDOMINAL PAIN [None]
  - ANXIETY [None]
  - CARDIAC DISORDER [None]
  - CARDIOMYOPATHY [None]
  - CHEST PAIN [None]
  - COLLAGEN DISORDER [None]
  - DIARRHOEA [None]
  - ELECTROCARDIOGRAM QT PROLONGED [None]
  - LUNG NEOPLASM [None]
  - MITRAL VALVE PROLAPSE [None]
